FAERS Safety Report 15168888 (Version 1)
Quarter: 2018Q3

REPORT INFORMATION
  Report Type: Other
  Country: IR (occurrence: IR)
  Receive Date: 20180720
  Receipt Date: 20180720
  Transmission Date: 20181010
  Serious: Yes (Other)
  Sender: FDA-Public Use
  Company Number: IR-DENTSPLY-2018SCDP000297

PATIENT
  Age: 50 Year
  Sex: Male

DRUGS (2)
  1. LIDOCAINE. [Suspect]
     Active Substance: LIDOCAINE
     Indication: VITRECTOMY
  2. LIDOCAINE. [Suspect]
     Active Substance: LIDOCAINE
     Indication: CATARACT OPERATION
     Dosage: 0.5 ML, 0.5 CC OF LIDOCAINE 1%

REACTIONS (2)
  - Retinal toxicity [Recovered/Resolved]
  - Blindness transient [Recovered/Resolved]
